FAERS Safety Report 4277011-2 (Version None)
Quarter: 2004Q1

REPORT INFORMATION
  Report Type: 
  Country: None (occurrence: None)
  Receive Date: 20040120
  Receipt Date: 20040109
  Transmission Date: 20041129
  Serious: Yes (Death)
  Sender: FDA-Public Use
  Company Number: DE-JNJFOC-20040101363

PATIENT
  Age: 70 Year
  Sex: Male
  Weight: 83 kg

DRUGS (4)
  1. REMICADE [Suspect]
     Indication: POLYARTHRITIS
     Dosage: 250 MG, INTRAVENOUS
     Route: 042
     Dates: start: 20020703, end: 20030701
  2. ENBREL [Suspect]
     Indication: POLYARTHRITIS
     Dosage: 25 MG, 1 IN 2 WEEK, SUBCUTANEOUS
     Route: 058
     Dates: start: 20000828, end: 20020614
  3. ENBREL [Suspect]
     Indication: POLYARTHRITIS
     Dosage: 25 MG, 1 IN 2 WEEK, SUBCUTANEOUS
     Route: 058
     Dates: start: 20030707, end: 20030731
  4. PREDNISONE [Concomitant]

REACTIONS (10)
  - BRADYCARDIA [None]
  - BRAIN DAMAGE [None]
  - COMA [None]
  - DIVERTICULAR PERFORATION [None]
  - DRUG INTERACTION [None]
  - ENTEROCOCCAL INFECTION [None]
  - ENTEROCOCCAL SEPSIS [None]
  - MENTAL DISORDER DUE TO A GENERAL MEDICAL CONDITION [None]
  - SHOCK [None]
  - VASCULITIS CEREBRAL [None]
